FAERS Safety Report 7986374-3 (Version None)
Quarter: 2011Q4

REPORT INFORMATION
  Report Type: 
  Country: None (occurrence: None)
  Receive Date: 20111216
  Receipt Date: 20110228
  Transmission Date: 20120403
  Serious: No
  Sender: FDA-Public Use
  Company Number: US-GLAXOSMITHKLINE-A0916792A

PATIENT
  Sex: Male

DRUGS (3)
  1. FISH OIL [Concomitant]
  2. FLAX SEED OIL [Concomitant]
  3. COREG CR [Suspect]
     Indication: HYPERTENSION
     Dosage: 80MG UNKNOWN

REACTIONS (5)
  - DIZZINESS [None]
  - HYPERTENSION [None]
  - DENTAL CARIES [None]
  - ANXIETY [None]
  - LOOSE TOOTH [None]
